FAERS Safety Report 25925223 (Version 3)
Quarter: 2025Q4

REPORT INFORMATION
  Report Type: Spontaneous
  Country: CA (occurrence: CA)
  Receive Date: 20251015
  Receipt Date: 20251205
  Transmission Date: 20260117
  Serious: Yes (Other)
  Sender: PFIZER
  Company Number: CA-PFIZER INC-202500042504

PATIENT
  Age: 55 Year
  Sex: Female
  Weight: 100 kg

DRUGS (5)
  1. IXIFI [Suspect]
     Active Substance: INFLIXIMAB-QBTX
     Indication: Colitis ulcerative
     Dosage: 5 MG/KG, EVERY 4 WEEKS
     Route: 042
     Dates: start: 20250503
  2. IXIFI [Suspect]
     Active Substance: INFLIXIMAB-QBTX
     Dosage: 5 MG/KG, 11 WEEKS AFTER LAST TREATMENT  (PRESCRIBED TREATMENTS ARE EVERY 4 WEEKS)
     Route: 042
     Dates: start: 20250719
  3. IXIFI [Suspect]
     Active Substance: INFLIXIMAB-QBTX
     Dosage: 480 MG, AFTER 8 WEEKS
     Route: 042
     Dates: start: 20250913
  4. IXIFI [Suspect]
     Active Substance: INFLIXIMAB-QBTX
     Dosage: 495 MG, EVERY 4 WEEKS
     Route: 042
     Dates: start: 20251011
  5. IXIFI [Suspect]
     Active Substance: INFLIXIMAB-QBTX
     Dosage: 500 MG (5MG/KG,EVERY 4 WEEKS)
     Route: 042
     Dates: start: 20251108

REACTIONS (7)
  - Endodontic procedure [Recovering/Resolving]
  - Lower limb fracture [Unknown]
  - Condition aggravated [Recovering/Resolving]
  - Blood thyroid stimulating hormone increased [Unknown]
  - Fall [Unknown]
  - Inappropriate schedule of product administration [Unknown]
  - Off label use [Unknown]

NARRATIVE: CASE EVENT DATE: 20250101
